FAERS Safety Report 23932569 (Version 1)
Quarter: 2024Q2

REPORT INFORMATION
  Report Type: Spontaneous
  Country: US (occurrence: US)
  Receive Date: 20240603
  Receipt Date: 20240603
  Transmission Date: 20240716
  Serious: Yes (Death, Other)
  Sender: FDA-Public Use
  Company Number: US-BRISTOL-MYERS SQUIBB COMPANY-2024-088797

PATIENT
  Age: 70 Year
  Sex: Male
  Weight: 136.53 kg

DRUGS (1)
  1. OPDIVO [Suspect]
     Active Substance: NIVOLUMAB
     Indication: Hodgkin^s disease stage I
     Dosage: ADMINISTERED ON DAY 1 AND DAY 15 EVERY 28 DAYS
     Route: 042
     Dates: start: 20240510

REACTIONS (1)
  - Death [Fatal]

NARRATIVE: CASE EVENT DATE: 20240513
